FAERS Safety Report 5924992-4 (Version None)
Quarter: 2008Q4

REPORT INFORMATION
  Report Type: 
  Country: None (occurrence: None)
  Receive Date: 20081021
  Receipt Date: 20080930
  Transmission Date: 20090506
  Serious: Yes (Death)
  Sender: FDA-Public Use
  Company Number: US-BAYER-200834911NA

PATIENT
  Age: 65 Year
  Sex: Male

DRUGS (1)
  1. TRASYLOL [Suspect]
     Indication: AORTIC DISSECTION
     Route: 042
     Dates: start: 20051207

REACTIONS (6)
  - ANHEDONIA [None]
  - AORTIC DISSECTION [None]
  - INJURY [None]
  - RENAL FAILURE [None]
  - UNEVALUABLE EVENT [None]
  - VENTRICULAR ARRHYTHMIA [None]
